FAERS Safety Report 7170822-5 (Version None)
Quarter: 2010Q4

REPORT INFORMATION
  Report Type: 
  Country: None (occurrence: None)
  Receive Date: 20101217
  Receipt Date: 20101209
  Transmission Date: 20110411
  Serious: Yes (Other)
  Sender: FDA-Public Use
  Company Number: JP-JNJFOC-20101200298

PATIENT
  Age: 89 Year
  Sex: Female

DRUGS (9)
  1. CRAVIT [Suspect]
     Indication: ENTEROCOLITIS BACTERIAL
     Route: 048
  2. CELECOXIB [Suspect]
     Indication: PRODUCT USED FOR UNKNOWN INDICATION
     Route: 065
  3. MYSLEE [Concomitant]
  4. NORVASC [Concomitant]
  5. BLOPRESS [Concomitant]
  6. LIVALO [Concomitant]
     Route: 065
  7. METHYCOBAL [Concomitant]
     Route: 065
  8. PAXIL [Concomitant]
     Route: 065
  9. PLETAL [Concomitant]
     Route: 065

REACTIONS (5)
  - CONFUSIONAL STATE [None]
  - CONVULSION [None]
  - DEAFNESS [None]
  - LOSS OF CONSCIOUSNESS [None]
  - OVERDOSE [None]
